FAERS Safety Report 7401701-3 (Version None)
Quarter: 2011Q1

REPORT INFORMATION
  Report Type: 
  Country: None (occurrence: None)
  Receive Date: 20110329
  Receipt Date: 20110316
  Transmission Date: 20110831
  Serious: Yes (Hospitalization)
  Sender: FDA-Public Use
  Company Number: 1000017837

PATIENT
  Age: 87 Year
  Sex: Male

DRUGS (6)
  1. RAMIPRIL [Suspect]
     Dosage: 10 MG (10 MG, 1 IN 1  D)
     Dates: end: 20101103
  2. ESCITALOPRAM OXALATE [Suspect]
     Dosage: 5 MG, AS NEEDED, ORAL
     Route: 048
     Dates: end: 20101103
  3. DICLOFENAC (DICLOFENAC) [Suspect]
     Dosage: 1 DOSAGE FORM, AS REQUIRED, CUTANEOUS
     Route: 003
     Dates: end: 20101103
  4. INIPOMP (PANTOPRAZOLE SODIUM) (TABLETS) [Suspect]
     Dosage: 40 MG, ORAL
     Route: 048
     Dates: end: 20101103
  5. CHRONADALATE LP (NIFEDIPINE TABLETS) [Suspect]
     Dosage: 30 MG (30 MG,  1 IN 1 D), ORAL
     Route: 048
     Dates: end: 20101103
  6. EFFERALGAN (PARACETAMOL) ( 1 GRAM) [Suspect]
     Dosage: 3 GRAM (1GM, 3 IN 1 D), ORAL
     Route: 048
     Dates: end: 20101103

REACTIONS (2)
  - PANCYTOPENIA [None]
  - BONE MARROW FAILURE [None]
